FAERS Safety Report 11967222 (Version 2)
Quarter: 2016Q1

REPORT INFORMATION
  Report Type: Spontaneous
  Country: US (occurrence: US)
  Receive Date: 20160127
  Receipt Date: 20160222
  Transmission Date: 20160526
  Serious: Yes (Life-Threatening, Hospitalization, Other)
  Sender: FDA-Public Use
  Company Number: US-GILEAD-2015-0182938

PATIENT
  Age: 41 Year
  Sex: Male
  Weight: 74 kg

DRUGS (5)
  1. TRUVADA [Suspect]
     Active Substance: EMTRICITABINE\TENOFOVIR DISOPROXIL FUMARATE
     Indication: PROPHYLAXIS AGAINST HIV INFECTION
     Dosage: 1 DF, UNK
     Route: 048
     Dates: start: 20141204, end: 20151108
  2. TESTOSTERON                        /00103101/ [Concomitant]
     Active Substance: TESTOSTERONE
     Indication: HYPOGONADISM MALE
     Dosage: 1 UNK, UNK
     Route: 048
     Dates: start: 20130301, end: 20151108
  3. ZOLOFT [Concomitant]
     Active Substance: SERTRALINE HYDROCHLORIDE
     Indication: DEPRESSION
     Dosage: UNK
     Dates: start: 20050101
  4. LORAZEPAM. [Concomitant]
     Active Substance: LORAZEPAM
     Indication: ANXIETY
     Dosage: UNK
     Dates: start: 20130101
  5. ARIMIDEX [Concomitant]
     Active Substance: ANASTROZOLE
     Indication: BLOOD OESTROGEN
     Dosage: UNK
     Dates: start: 20130301, end: 20151108

REACTIONS (4)
  - Wolff-Parkinson-White syndrome [Recovered/Resolved]
  - Chest pain [Recovered/Resolved]
  - Blood creatine phosphokinase MB increased [Unknown]
  - Troponin increased [Recovered/Resolved]

NARRATIVE: CASE EVENT DATE: 20151108
